FAERS Safety Report 6569457-4 (Version None)
Quarter: 2010Q1

REPORT INFORMATION
  Report Type: 
  Country: None (occurrence: None)
  Receive Date: 20100204
  Receipt Date: 20100127
  Transmission Date: 20100710
  Serious: Yes (Death, Other)
  Sender: FDA-Public Use
  Company Number: FR-WYE-G05382310

PATIENT
  Age: 48 Year
  Sex: Male

DRUGS (8)
  1. RELISTOR [Suspect]
     Indication: CONSTIPATION
     Route: 058
     Dates: start: 20091113
  2. CISPLATIN [Concomitant]
     Indication: LUNG CANCER METASTATIC
     Dosage: 180 MG
     Dates: start: 20091113
  3. KEPPRA [Concomitant]
     Dosage: UNKNOWN
  4. MEDROL [Concomitant]
     Route: 042
     Dates: start: 20091022, end: 20090101
  5. MEDROL [Concomitant]
     Dosage: 100 MG TOTAL DAILY
     Route: 048
     Dates: start: 20090101
  6. FORLAX [Concomitant]
     Dosage: UNKNOWN
  7. NAVELBINE [Concomitant]
     Indication: LUNG CANCER METASTATIC
     Dosage: 50 MG
     Dates: start: 20091113
  8. OXYCONTIN [Concomitant]
     Dosage: 130 MG TOTAL DAILY
     Route: 048
     Dates: start: 20091022

REACTIONS (8)
  - ABDOMINAL PAIN [None]
  - ASCITES [None]
  - CONDITION AGGRAVATED [None]
  - DRUG INEFFECTIVE [None]
  - FAECAL VOMITING [None]
  - GASTROINTESTINAL DISORDER [None]
  - PNEUMOPERITONEUM [None]
  - SHOCK [None]
